FAERS Safety Report 10081948 (Version 2)
Quarter: 2014Q2

REPORT INFORMATION
  Report Type: Spontaneous
  Country: JP (occurrence: JP)
  Receive Date: 20140416
  Receipt Date: 20140429
  Transmission Date: 20141212
  Serious: Yes (Other)
  Sender: FDA-Public Use
  Company Number: JP-GLAXOSMITHKLINE-B0986039A

PATIENT
  Age: 70 Year
  Sex: Male

DRUGS (8)
  1. SERETIDE (50MCG/250MCG) [Suspect]
     Indication: ASTHMA
     Dosage: 250MCG TWICE PER DAY
     Route: 055
     Dates: start: 20140203, end: 201404
  2. CRESTOR [Concomitant]
     Dosage: 2.5MG PER DAY
     Route: 048
  3. BAYASPIRIN [Concomitant]
     Dosage: 100MG PER DAY
     Route: 048
  4. TENORMIN [Concomitant]
     Dosage: 25MG PER DAY
     Route: 048
  5. PARIET [Concomitant]
     Dosage: 10MG PER DAY
     Route: 048
  6. CLARITIN REDITABS [Concomitant]
     Route: 048
  7. SINGULAIR [Concomitant]
     Route: 048
  8. PRIVINA [Concomitant]
     Route: 065

REACTIONS (3)
  - Urinary retention [Recovered/Resolved]
  - Muscle spasms [Recovered/Resolved]
  - Myalgia [Recovered/Resolved]
